FAERS Safety Report 13618486 (Version 1)
Quarter: 2017Q2

REPORT INFORMATION
  Report Type: Spontaneous
  Country: US (occurrence: US)
  Receive Date: 20170606
  Receipt Date: 20170606
  Transmission Date: 20170830
  Serious: No
  Sender: FDA-Public Use
  Company Number: US-ABBVIE-16P-163-1674860-00

PATIENT
  Age: 68 Year
  Sex: Female

DRUGS (2)
  1. DRONABINOL. [Suspect]
     Active Substance: DRONABINOL
     Indication: RELAXATION THERAPY
  2. DRONABINOL. [Suspect]
     Active Substance: DRONABINOL
     Indication: GASTRIC DISORDER
     Dosage: BEFORE MEALS
     Route: 048

REACTIONS (1)
  - Drug effect decreased [Not Recovered/Not Resolved]
